FAERS Safety Report 8259562-9 (Version None)
Quarter: 2012Q2

REPORT INFORMATION
  Report Type: 
  Country: None (occurrence: None)
  Receive Date: 20120404
  Receipt Date: 20120320
  Transmission Date: 20120825
  Serious: Yes (Hospitalization)
  Sender: FDA-Public Use
  Company Number: PHHY2012FR016405

PATIENT
  Sex: Male
  Weight: 70 kg

DRUGS (6)
  1. ASPIRIN [Concomitant]
     Indication: ANTICOAGULANT THERAPY
     Dosage: 1 DF, QD
  2. NICARDIPINE HYDROCHLORIDE [Concomitant]
     Dosage: 20 MG, UNK
  3. NEORAL [Suspect]
     Indication: LIVER TRANSPLANT
     Dosage: 10 MG, AT 8 ORAL TABLETS DAILY
     Route: 048
     Dates: start: 20010101
  4. MYCOPHENOLATE MOFETIL (CELLCEPT) [Concomitant]
     Dosage: 2 DF, BID
     Route: 048
     Dates: start: 20010101
  5. CRESTOR [Interacting]
     Indication: HYPERCHOLESTEROLAEMIA
     Dosage: 1 DF
     Route: 048
     Dates: end: 20120221
  6. MICARDIS [Concomitant]
     Indication: HYPERTENSION
     Dosage: 1 DF, QD
     Route: 048
     Dates: start: 20090812

REACTIONS (7)
  - FATIGUE [None]
  - DRUG INTERACTION [None]
  - BLOOD CHOLESTEROL INCREASED [None]
  - CAROTID ARTERY OCCLUSION [None]
  - GENERAL PHYSICAL HEALTH DETERIORATION [None]
  - CAROTID ARTERY STENOSIS [None]
  - MALAISE [None]
